FAERS Safety Report 10192809 (Version 1)
Quarter: 2014Q2

REPORT INFORMATION
  Report Type: Spontaneous
  Country: US (occurrence: US)
  Receive Date: 20140523
  Receipt Date: 20140523
  Transmission Date: 20141212
  Serious: No
  Sender: FDA-Public Use
  Company Number: US-GILEAD-2014-0103318

PATIENT
  Sex: Male

DRUGS (3)
  1. SOVALDI [Suspect]
     Indication: HEPATITIS C
     Dosage: UNK
     Route: 065
     Dates: start: 201404
  2. RIBAVIRIN [Concomitant]
     Dosage: UNK
     Dates: start: 201404
  3. PEGINTERFERON ALFA [Concomitant]
     Dosage: UNK
     Dates: start: 201404

REACTIONS (1)
  - Rash [Unknown]
